FAERS Safety Report 17222086 (Version 1)
Quarter: 2020Q1

REPORT INFORMATION
  Report Type: Spontaneous
  Country: US (occurrence: US)
  Receive Date: 20191231
  Receipt Date: 20191231
  Transmission Date: 20200409
  Serious: Yes (Other)
  Sender: FDA-Public Use
  Company Number: None

PATIENT
  Age: 71 Year
  Sex: Female
  Weight: 80.1 kg

DRUGS (7)
  1. ACETAMINOPHEN 325 [Concomitant]
  2. GAMUNEX [Suspect]
     Active Substance: HUMAN IMMUNOGLOBULIN G
     Indication: IMMUNODEFICIENCY COMMON VARIABLE
     Route: 042
     Dates: start: 20191217, end: 20191217
  3. LOVENOX 30MG [Concomitant]
     Dates: start: 20191217
  4. KETOROLAC [Concomitant]
     Active Substance: KETOROLAC TROMETHAMINE
     Dates: start: 20191217
  5. GAMUNEX [Suspect]
     Active Substance: HUMAN IMMUNOGLOBULIN G
     Indication: IMMUNODEFICIENCY COMMON VARIABLE
     Route: 042
     Dates: start: 20191217, end: 20191217
  6. DIPHENHYDRAMINE 25MG [Concomitant]
     Active Substance: DIPHENHYDRAMINE
     Dates: start: 20191217
  7. DEXTROSE/NACL 0.45% 500ML [Concomitant]

REACTIONS (3)
  - Swollen tongue [None]
  - Infusion related reaction [None]
  - Paraesthesia oral [None]

NARRATIVE: CASE EVENT DATE: 20191217
